FAERS Safety Report 5980882-2 (Version None)
Quarter: 2008Q4

REPORT INFORMATION
  Report Type: 
  Country: None (occurrence: None)
  Receive Date: 20081205
  Receipt Date: 20080625
  Transmission Date: 20090506
  Serious: No
  Sender: FDA-Public Use
  Company Number: A0734725A

PATIENT
  Age: 29 Year
  Sex: Male

DRUGS (1)
  1. COMMIT [Suspect]
     Dates: start: 20080623, end: 20080624

REACTIONS (3)
  - DYSPEPSIA [None]
  - ORAL PAIN [None]
  - THROAT IRRITATION [None]
